FAERS Safety Report 21589797 (Version 1)
Quarter: 2022Q4

REPORT INFORMATION
  Report Type: Spontaneous
  Country: US (occurrence: None)
  Receive Date: 20221111
  Receipt Date: 20221111
  Transmission Date: 20230112
  Serious: Yes (Death)
  Sender: FDA-Public Use
  Company Number: None

PATIENT
  Age: 37 Year
  Sex: Male
  Weight: 111 kg

DRUGS (8)
  1. EVUSHELD [Suspect]
     Active Substance: CILGAVIMAB\TIXAGEVIMAB
     Dates: start: 20221012
  2. CARVEDILOL [Concomitant]
     Active Substance: CARVEDILOL
  3. LEVOTHYROXINE [Concomitant]
     Active Substance: LEVOTHYROXINE
  4. MAGNESIUM OXIDE [Concomitant]
     Active Substance: MAGNESIUM OXIDE
  5. TACROLIMUS [Concomitant]
     Active Substance: TACROLIMUS
  6. PREDNISONE [Concomitant]
     Active Substance: PREDNISONE
  7. MYCOPHENOLATE MOFETIL [Concomitant]
     Active Substance: MYCOPHENOLATE MOFETIL
  8. NIFEDIPINE [Concomitant]
     Active Substance: NIFEDIPINE

REACTIONS (4)
  - Feeling abnormal [None]
  - Depressed mood [None]
  - Pulse absent [None]
  - Ventricular fibrillation [None]

NARRATIVE: CASE EVENT DATE: 20221030
